FAERS Safety Report 9295332 (Version 1)
Quarter: 2013Q2

REPORT INFORMATION
  Report Type: Report from Study
  Country: US (occurrence: US)
  Receive Date: 20130517
  Receipt Date: 20130517
  Transmission Date: 20140414
  Serious: Yes (Other)
  Sender: FDA-Public Use
  Company Number: CA-ASTELLAS-2013US004862

PATIENT
  Sex: Male

DRUGS (1)
  1. ERLOTINIB TABLET [Suspect]
     Indication: BLADDER CANCER
     Dosage: 100 MG, UID/QD
     Route: 048
     Dates: start: 20130419

REACTIONS (2)
  - Off label use [Unknown]
  - Blood count abnormal [Unknown]
